FAERS Safety Report 5830784-7 (Version None)
Quarter: 2008Q3

REPORT INFORMATION
  Report Type: 
  Country: None (occurrence: None)
  Receive Date: 20080801
  Receipt Date: 20071119
  Transmission Date: 20090109
  Serious: No
  Sender: FDA-Public Use
  Company Number: US-BRISTOL-MYERS SQUIBB COMPANY-13987789

PATIENT
  Age: 73 Year
  Sex: Female
  Weight: 73 kg

DRUGS (7)
  1. COUMADIN [Suspect]
     Indication: ATRIAL FIBRILLATION
     Dosage: CURRENT REGIMEN TAKEN FOR THE LAST 2 WEEKS IS ALTERNATING DOSES OF 2.5 MG AND 3 MG DAILY.
     Dates: start: 20011201
  2. SIMVASTIN [Concomitant]
  3. SYNTHROID [Concomitant]
  4. TOPROL-XL [Concomitant]
  5. TAMBOCOR [Concomitant]
  6. CITRACAL + D [Concomitant]
  7. FOSAMAX [Concomitant]

REACTIONS (2)
  - INTERNATIONAL NORMALISED RATIO FLUCTUATION [None]
  - THYROID FUNCTION TEST ABNORMAL [None]
